FAERS Safety Report 25314437 (Version 2)
Quarter: 2025Q2

REPORT INFORMATION
  Report Type: Spontaneous
  Country: JP (occurrence: None)
  Receive Date: 20250514
  Receipt Date: 20250519
  Transmission Date: 20250717
  Serious: Yes (Other)
  Sender: INCYTE
  Company Number: JP-002147023-NVSJ2025JP004995

PATIENT

DRUGS (4)
  1. RUXOLITINIB [Suspect]
     Active Substance: RUXOLITINIB
     Indication: Idiopathic pneumonia syndrome
     Route: 065
  2. RUXOLITINIB [Suspect]
     Active Substance: RUXOLITINIB
     Indication: Graft versus host disease in gastrointestinal tract
     Dosage: 20 MG, QD
     Route: 065
  3. RUXOLITINIB [Suspect]
     Active Substance: RUXOLITINIB
     Indication: Haemophagocytic lymphohistiocytosis
     Dosage: 5 MG, QD
     Route: 065
  4. RUXOLITINIB [Suspect]
     Active Substance: RUXOLITINIB
     Dosage: 10 MG, QD
     Route: 065

REACTIONS (6)
  - Acute myeloid leukaemia [Unknown]
  - Chronic graft versus host disease in skin [Unknown]
  - Epstein-Barr viraemia [Unknown]
  - Hypogonadism [Unknown]
  - Hepatic mass [Unknown]
  - Osteonecrosis [Unknown]
